FAERS Safety Report 7650617-6 (Version None)
Quarter: 2011Q3

REPORT INFORMATION
  Report Type: 
  Country: None (occurrence: None)
  Receive Date: 20110802
  Receipt Date: 20110727
  Transmission Date: 20111222
  Serious: Yes (Hospitalization)
  Sender: FDA-Public Use
  Company Number: US-SANOFI-AVENTIS-2011SA048317

PATIENT
  Age: 40 Year
  Sex: Female

DRUGS (3)
  1. COUMADIN [Suspect]
     Indication: PULMONARY EMBOLISM
     Route: 065
     Dates: start: 20110701
  2. LOVENOX [Suspect]
     Indication: PULMONARY EMBOLISM
     Route: 065
     Dates: start: 20110701, end: 20110701
  3. LOVENOX [Suspect]
     Route: 065
     Dates: start: 20110701, end: 20110701

REACTIONS (7)
  - DYSPNOEA [None]
  - PAIN [None]
  - CHEST DISCOMFORT [None]
  - CONTUSION [None]
  - BREAST HAEMATOMA [None]
  - INTERNATIONAL NORMALISED RATIO INCREASED [None]
  - VENTRICULAR TACHYCARDIA [None]
